FAERS Safety Report 9734697 (Version 1)
Quarter: 2013Q4

REPORT INFORMATION
  Report Type: Spontaneous
  Country: US (occurrence: US)
  Receive Date: 20131206
  Receipt Date: 20131206
  Transmission Date: 20140711
  Serious: Yes (Other)
  Sender: FDA-Public Use
  Company Number: US-RANBAXY-2013US-75709

PATIENT
  Age: 40 Year
  Sex: Female

DRUGS (2)
  1. GABAPENTIN [Suspect]
     Indication: PAIN
     Route: 065
  2. TRAZADONE [Suspect]
     Indication: PRODUCT USED FOR UNKNOWN INDICATION
     Dosage: 50 MG, DAILY
     Route: 065

REACTIONS (1)
  - Drug-induced liver injury [Recovered/Resolved]
